FAERS Safety Report 20724658 (Version 2)
Quarter: 2022Q2

REPORT INFORMATION
  Report Type: Other
  Country: US (occurrence: US)
  Receive Date: 20220419
  Receipt Date: 20220425
  Transmission Date: 20220721
  Serious: Yes (Hospitalization, Other)
  Sender: FDA-Public Use
  Company Number: US-Covis Pharma GmbH-2022COV01135

PATIENT
  Age: 40 Year
  Sex: Female

DRUGS (7)
  1. MAKENA [Suspect]
     Active Substance: HYDROXYPROGESTERONE CAPROATE
     Indication: Premature delivery
     Route: 058
     Dates: start: 20211218, end: 20220220
  2. VITAMINS [Concomitant]
     Active Substance: VITAMINS
     Indication: Pregnancy
     Dates: end: 20220412
  3. ZOFRAN [Concomitant]
     Active Substance: ONDANSETRON HYDROCHLORIDE
     Indication: Nausea
     Dates: end: 20220412
  4. REGLAN [Concomitant]
     Active Substance: METOCLOPRAMIDE HYDROCHLORIDE
     Indication: Nausea
     Dates: end: 20220412
  5. PROMETRIUM [Concomitant]
     Active Substance: PROGESTERONE
     Indication: Premature labour
     Dates: end: 20220412
  6. PROCARDIA [Concomitant]
     Active Substance: NIFEDIPINE
     Indication: Premature labour
     Dates: end: 20220412
  7. TERBUTALINE [Concomitant]
     Active Substance: TERBUTALINE
     Indication: Premature labour
     Dates: end: 20220412

REACTIONS (5)
  - Female sterilisation [Unknown]
  - Salpingectomy [Unknown]
  - Premature labour [Recovered/Resolved]
  - Premature delivery [Recovered/Resolved]
  - Nausea [Unknown]

NARRATIVE: CASE EVENT DATE: 20220207
